FAERS Safety Report 5474419-4 (Version None)
Quarter: 2007Q3

REPORT INFORMATION
  Report Type: 
  Country: None (occurrence: None)
  Receive Date: 20070928
  Receipt Date: 20070928
  Transmission Date: 20080115
  Serious: No
  Sender: FDA-Public Use
  Company Number: None

PATIENT
  Age: 42 Day
  Sex: Male
  Weight: 4.7628 kg

DRUGS (2)
  1. PHENYTOIN [Suspect]
     Indication: CONVULSION
  2. NYSTATIN [Suspect]
     Indication: CANDIDIASIS

REACTIONS (2)
  - INTERCEPTED DRUG DISPENSING ERROR [None]
  - MEDICATION ERROR [None]
